FAERS Safety Report 11920311 (Version 5)
Quarter: 2017Q3

REPORT INFORMATION
  Report Type: Spontaneous
  Country: US (occurrence: US)
  Receive Date: 20160115
  Receipt Date: 20170918
  Transmission Date: 20171127
  Serious: Yes (Other)
  Sender: FDA-Public Use
  Company Number: US-PFIZER INC-2016007297

PATIENT
  Age: 82 Year
  Sex: Female
  Weight: 54.42 kg

DRUGS (4)
  1. IBRANCE [Suspect]
     Active Substance: PALBOCICLIB
     Dosage: 100 MG, CYCLIC (DAILY, EVERY DAY FOR 21 DAYS-OFF 7 DAYS THEN REPEAT )
     Route: 048
     Dates: end: 20160115
  2. FASLODEX [Concomitant]
     Active Substance: FULVESTRANT
     Dosage: UNK
     Dates: start: 20170401
  3. IBRANCE [Suspect]
     Active Substance: PALBOCICLIB
     Dosage: 100 MG, CYCLIC (ONCE A DAY FOR 21 DAYS AND OFF 7 DAYS)
     Dates: start: 20170401
  4. IBRANCE [Suspect]
     Active Substance: PALBOCICLIB
     Indication: BREAST CANCER METASTATIC
     Dosage: 125 MG, DAILY
     Route: 048
     Dates: start: 20150906

REACTIONS (6)
  - Asthenia [Recovered/Resolved]
  - Hypotension [Recovered/Resolved]
  - Erythropenia [Recovered/Resolved]
  - Cytopenia [Recovered/Resolved]
  - Dysgeusia [Recovering/Resolving]
  - Loss of personal independence in daily activities [Recovered/Resolved]

NARRATIVE: CASE EVENT DATE: 201512
